FAERS Safety Report 8992106 (Version 1)
Quarter: 2012Q4

REPORT INFORMATION
  Report Type: Report from Study
  Country: JP (occurrence: JP)
  Receive Date: 20121231
  Receipt Date: 20121231
  Transmission Date: 20130627
  Serious: Yes (Other)
  Sender: FDA-Public Use
  Company Number: JP-VERTEX PHARMACEUTICALS INC.-2012-026740

PATIENT
  Age: 72 Year
  Sex: Female

DRUGS (6)
  1. VX-950 (TELAPREVIR) [Suspect]
     Indication: CHRONIC HEPATITIS C
     Dosage: 2250 mg, qd
     Route: 048
     Dates: start: 20120216, end: 20120502
  2. REBETOL [Suspect]
     Indication: CHRONIC HEPATITIS C
     Dosage: 600 mg, qd
     Route: 048
     Dates: start: 20120216, end: 20120229
  3. REBETOL [Suspect]
     Dosage: 200 mg, qd
     Route: 048
     Dates: start: 20120301
  4. PEGINTERFERON ALFA-2B [Suspect]
     Indication: CHRONIC HEPATITIS C
     Dosage: 1.5 ?g/kg, qw
     Route: 058
     Dates: start: 20120216, end: 20120509
  5. PEGINTERFERON ALFA-2B [Suspect]
     Dosage: 0.9 ?g/kg, qw
     Route: 058
     Dates: start: 20120510
  6. LIVALO [Concomitant]
     Dosage: 1 mg, qd
     Route: 048
     Dates: end: 20120509

REACTIONS (1)
  - Retinopathy [Recovered/Resolved]
